FAERS Safety Report 20979088 (Version 1)
Quarter: 2022Q2

REPORT INFORMATION
  Report Type: Report from Study
  Country: CA (occurrence: CA)
  Receive Date: 20220619
  Receipt Date: 20220619
  Transmission Date: 20220720
  Serious: Yes (Other)
  Sender: FDA-Public Use
  Company Number: CA-ABBVIE-22K-028-4434894-00

PATIENT
  Sex: Female

DRUGS (1)
  1. RINVOQ [Suspect]
     Active Substance: UPADACITINIB
     Indication: Rheumatoid arthritis
     Route: 048
     Dates: start: 20200828

REACTIONS (5)
  - Cataract [Unknown]
  - Hypoacusis [Unknown]
  - Post procedural complication [Unknown]
  - Peripheral swelling [Unknown]
  - Arthralgia [Unknown]
